FAERS Safety Report 11465101 (Version 1)
Quarter: 2015Q3

REPORT INFORMATION
  Report Type: Spontaneous
  Country: US (occurrence: US)
  Receive Date: 20150907
  Receipt Date: 20150907
  Transmission Date: 20151125
  Serious: Yes (Hospitalization, Other)
  Sender: FDA-Public Use
  Company Number: US-PFIZER INC-2015285619

PATIENT
  Age: 62 Year
  Sex: Female

DRUGS (18)
  1. LAMICTAL XR [Interacting]
     Active Substance: LAMOTRIGINE
     Dosage: 600 MG, UNK
  2. LAMICTAL XR [Interacting]
     Active Substance: LAMOTRIGINE
     Dosage: 400 MG, DAILY
     Dates: start: 2001
  3. LYRICA [Suspect]
     Active Substance: PREGABALIN
     Indication: PRODUCT USED FOR UNKNOWN INDICATION
     Dosage: UNK
  4. LAMICTAL XR [Interacting]
     Active Substance: LAMOTRIGINE
     Dosage: 500 MG, 1X/DAY (200MG IN MORNING AND 300MG AT NIGHT)
  5. LAMICTAL XR [Interacting]
     Active Substance: LAMOTRIGINE
     Dosage: 400 MG, UNK
  6. BACTRIM [Interacting]
     Active Substance: SULFAMETHOXAZOLE\TRIMETHOPRIM
     Indication: PRODUCT USED FOR UNKNOWN INDICATION
     Dosage: UNK
  7. LAMICTAL XR [Interacting]
     Active Substance: LAMOTRIGINE
     Indication: SEIZURE
     Dosage: 200 MG, 2X/DAY
     Dates: start: 2002
  8. LAMOTRIGINE. [Interacting]
     Active Substance: LAMOTRIGINE
     Indication: EPILEPSY
     Dosage: 500 MG, UNK
     Route: 048
     Dates: start: 20140612
  9. VITAMIN D [Concomitant]
     Active Substance: CHOLECALCIFEROL
     Dosage: UNK
  10. LAMICTAL XR [Interacting]
     Active Substance: LAMOTRIGINE
     Dosage: UNK
     Dates: start: 2012
  11. LAMICTAL [Interacting]
     Active Substance: LAMOTRIGINE
     Indication: SEIZURE
     Dosage: 500 MG, UNK
  12. LAMICTAL [Interacting]
     Active Substance: LAMOTRIGINE
     Dosage: 400 MG, UNK
  13. ZONEGRAN [Interacting]
     Active Substance: ZONISAMIDE
     Indication: PRODUCT USED FOR UNKNOWN INDICATION
     Dosage: 400 MG, UNK
  14. DEPAKOTE [Interacting]
     Active Substance: DIVALPROEX SODIUM
     Dosage: UNK
  15. LAMICTAL [Interacting]
     Active Substance: LAMOTRIGINE
     Indication: EPILEPSY
     Dosage: 600 MG, UNK
     Route: 048
     Dates: start: 2012
  16. CELEXA [Concomitant]
     Active Substance: CITALOPRAM HYDROBROMIDE
     Dosage: UNK
  17. TRAZODONE [Concomitant]
     Active Substance: TRAZODONE HYDROCHLORIDE
     Dosage: UNK
  18. CEREFOLIN NAC [Concomitant]
     Dosage: UNK

REACTIONS (16)
  - Mental disorder [Unknown]
  - Joint swelling [Recovered/Resolved]
  - Arthralgia [Recovered/Resolved]
  - Nausea [Not Recovered/Not Resolved]
  - Adverse drug reaction [Unknown]
  - Fall [Unknown]
  - Suicide attempt [Unknown]
  - Overdose [Unknown]
  - Adverse event [Unknown]
  - Drug hypersensitivity [Unknown]
  - Anticonvulsant drug level decreased [Recovered/Resolved]
  - Seizure [Recovered/Resolved]
  - Rash [Not Recovered/Not Resolved]
  - Drug interaction [Unknown]
  - Urticaria [Not Recovered/Not Resolved]
  - Diarrhoea [Not Recovered/Not Resolved]

NARRATIVE: CASE EVENT DATE: 2012
